FAERS Safety Report 16261258 (Version 2)
Quarter: 2019Q2

REPORT INFORMATION
  Report Type: Report from Study
  Country: CR (occurrence: CR)
  Receive Date: 20190501
  Receipt Date: 20190503
  Transmission Date: 20190711
  Serious: No
  Sender: FDA-Public Use
  Company Number: CR-SA-2019SA116433

PATIENT
  Age: 49 Year
  Sex: Male

DRUGS (1)
  1. CLOPIDOGREL BISULFATE. [Suspect]
     Active Substance: CLOPIDOGREL BISULFATE
     Indication: PROPHYLAXIS
     Dosage: 1 TABLET OF 75 MG, QD
     Route: 048
     Dates: start: 201507, end: 2017

REACTIONS (1)
  - No adverse event [Unknown]
